FAERS Safety Report 5471083-5 (Version None)
Quarter: 2007Q3

REPORT INFORMATION
  Report Type: 
  Country: None (occurrence: None)
  Receive Date: 20070928
  Receipt Date: 20070921
  Transmission Date: 20080115
  Serious: Yes (Hospitalization)
  Sender: FDA-Public Use
  Company Number: US-ASTRAZENECA-2007AC01838

PATIENT
  Age: 72 Year
  Sex: Female

DRUGS (7)
  1. QUETIAPINE FUMARATE [Suspect]
     Indication: DEPRESSION
     Route: 048
  2. QUETIAPINE FUMARATE [Suspect]
     Indication: PSYCHOTIC DISORDER
     Route: 048
  3. QUETIAPINE FUMARATE [Suspect]
     Indication: DELUSION
     Route: 048
  4. QUETIAPINE FUMARATE [Suspect]
     Route: 048
  5. QUETIAPINE FUMARATE [Suspect]
     Route: 048
  6. QUETIAPINE FUMARATE [Suspect]
     Route: 048
  7. PHENELZINE [Suspect]
     Indication: DEPRESSION

REACTIONS (1)
  - SEROTONIN SYNDROME [None]
